FAERS Safety Report 9418274 (Version 1)
Quarter: 2013Q3

REPORT INFORMATION
  Report Type: Spontaneous
  Country: US (occurrence: US)
  Receive Date: 20130724
  Receipt Date: 20130724
  Transmission Date: 20140515
  Serious: No
  Sender: FDA-Public Use
  Company Number: US-009507513-1307USA010574

PATIENT
  Sex: Male

DRUGS (3)
  1. COZAAR [Suspect]
     Route: 048
  2. CODEINE [Suspect]
  3. LIPITOR [Suspect]

REACTIONS (6)
  - Rubber sensitivity [Unknown]
  - Iodine allergy [Unknown]
  - Drug hypersensitivity [Unknown]
  - Rash [Unknown]
  - Cough [Unknown]
  - Pain [Unknown]
